FAERS Safety Report 5897539-9 (Version None)
Quarter: 2008Q3

REPORT INFORMATION
  Report Type: 
  Country: None (occurrence: None)
  Receive Date: 20080925
  Receipt Date: 20080922
  Transmission Date: 20090109
  Serious: Yes (Other)
  Sender: FDA-Public Use
  Company Number: FRWYE774724AUG06

PATIENT
  Sex: Male

DRUGS (1)
  1. SIROLIMUS [Suspect]
     Indication: NEOPLASM PROPHYLAXIS
     Dosage: UNKNOWN
     Route: 048
     Dates: start: 20050121, end: 20060523

REACTIONS (1)
  - PROSTATE CANCER [None]
